FAERS Safety Report 5188046-X (Version None)
Quarter: 2006Q4

REPORT INFORMATION
  Report Type: 
  Country: None (occurrence: None)
  Receive Date: 20061214
  Receipt Date: 20061214
  Transmission Date: 20070319
  Serious: Yes (Hospitalization, Other)
  Sender: FDA-Public Use
  Company Number: None

PATIENT
  Age: 78 Year
  Sex: Male

DRUGS (13)
  1. PHENYTOIN [Suspect]
     Indication: CONVULSION
     Dosage: 200 MG DAILY AT BEDTIME PO
     Route: 048
  2. QUETIAPINE FUMARATE [Suspect]
     Indication: AFFECTIVE DISORDER
     Dosage: 100MG DAILY AT BEDTIME PO
     Route: 048
  3. QUETIAPINE FUMARATE [Suspect]
     Indication: DEMENTIA
     Dosage: 100MG DAILY AT BEDTIME PO
     Route: 048
  4. LISINOPRIL [Concomitant]
  5. PROPOXYPHENE HYDROCHLORIDE [Concomitant]
  6. NAPSYLATE/ACETOMINOPHEN [Concomitant]
  7. ESOMEPRAZOLE MAGNESIUM [Concomitant]
  8. HYDROCHLOROTHIAZIDE [Concomitant]
  9. ESCITALOPRAM OXALATE [Concomitant]
  10. ASPIRIN [Concomitant]
  11. DIPYRIDAMOLE [Concomitant]
  12. MULTI-VITAMIN [Concomitant]
  13. DOCUSATE SODIUM [Concomitant]

REACTIONS (5)
  - DRUG TOXICITY [None]
  - HEPATITIS ACUTE [None]
  - HEPATITIS C [None]
  - HEPATOCELLULAR DAMAGE [None]
  - HEPATOTOXICITY [None]
